FAERS Safety Report 6459112-3 (Version None)
Quarter: 2009Q4

REPORT INFORMATION
  Report Type: 
  Country: None (occurrence: None)
  Receive Date: 20091127
  Receipt Date: 20091116
  Transmission Date: 20100525
  Serious: Yes (Other)
  Sender: FDA-Public Use
  Company Number: US-PFIZER INC-2009299235

PATIENT
  Sex: Female
  Weight: 59 kg

DRUGS (4)
  1. NORVASC [Suspect]
     Indication: HYPERTENSION
     Dates: start: 19930101, end: 20090301
  2. NORVASC [Suspect]
     Dosage: UNK
     Dates: start: 20090101
  3. AMLODIPINE BESYLATE [Suspect]
     Indication: HYPERTENSION
     Dates: start: 20090301, end: 20090101
  4. TENORMIN [Concomitant]
     Indication: TACHYCARDIA
     Dosage: 25 MG, 1X/DAY

REACTIONS (5)
  - BREAST LUMP REMOVAL [None]
  - CATARACT [None]
  - DRUG INEFFECTIVE [None]
  - HEADACHE [None]
  - MALAISE [None]
